FAERS Safety Report 9548579 (Version 3)
Quarter: 2014Q1

REPORT INFORMATION
  Report Type: Spontaneous
  Country: US (occurrence: None)
  Receive Date: 20130627
  Receipt Date: 20140328
  Transmission Date: 20141002
  Serious: No
  Sender: FDA-Public Use
  Company Number: 1000043330

PATIENT
  Age: 73 Year
  Sex: Female

DRUGS (6)
  1. LINZESS [Suspect]
     Indication: CONSTIPATION
     Route: 048
     Dates: start: 20130225, end: 20130304
  2. FUROSEMIDE [Concomitant]
  3. PREGABALIN [Concomitant]
  4. FLUCONAZOLE [Concomitant]
  5. METHADONE [Concomitant]
  6. LEVOCETIRIZINE [Concomitant]

REACTIONS (2)
  - Mucous stools [None]
  - Seborrhoea [None]
